FAERS Safety Report 4415195-3 (Version None)
Quarter: 2004Q3

REPORT INFORMATION
  Report Type: 
  Country: None (occurrence: None)
  Receive Date: 20040802
  Receipt Date: 20040719
  Transmission Date: 20050211
  Serious: Yes (Other)
  Sender: FDA-Public Use
  Company Number: 04-00370

PATIENT
  Age: 39 Year
  Sex: Female
  Weight: 97 kg

DRUGS (5)
  1. ALBUTEROL SULFATE [Suspect]
     Dosage: 2.5 MG INHALATION
     Route: 055
  2. CLARITIN [Concomitant]
  3. FLONASE [Concomitant]
  4. ELAVIL [Concomitant]
  5. ALBUTEROL [Concomitant]

REACTIONS (7)
  - BLOOD CHLORIDE INCREASED [None]
  - BLOOD POTASSIUM DECREASED [None]
  - BRONCHOSPASM [None]
  - HEART RATE INCREASED [None]
  - LACTIC ACIDOSIS [None]
  - OXYGEN SATURATION DECREASED [None]
  - POST PROCEDURAL COMPLICATION [None]
